FAERS Safety Report 7360770-X (Version None)
Quarter: 2011Q1

REPORT INFORMATION
  Report Type: 
  Country: None (occurrence: None)
  Receive Date: 20110318
  Receipt Date: 20110315
  Transmission Date: 20110831
  Serious: Yes (Death)
  Sender: FDA-Public Use
  Company Number: JP-PFIZER INC-2011058401

PATIENT
  Age: 83 Year
  Sex: Female

DRUGS (2)
  1. BUSCOPAN [Suspect]
     Indication: ABDOMINAL PAIN
  2. ATARAX [Suspect]
     Dosage: UNK
     Dates: start: 20110224, end: 20110224

REACTIONS (1)
  - DEATH [None]
